FAERS Safety Report 18672721 (Version 1)
Quarter: 2020Q4

REPORT INFORMATION
  Report Type: Spontaneous
  Country: IT (occurrence: IT)
  Receive Date: 20201228
  Receipt Date: 20201228
  Transmission Date: 20210114
  Serious: Yes (Death)
  Sender: FDA-Public Use
  Company Number: IT-MALLINCKRODT-T202006000

PATIENT
  Age: 69 Year
  Sex: Male

DRUGS (4)
  1. UVADEX [Suspect]
     Active Substance: METHOXSALEN
     Indication: CUTANEOUS T-CELL LYMPHOMA
     Dosage: UNK, 2 TIMES PER WEEK
  2. ACITRETIN. [Suspect]
     Active Substance: ACITRETIN
     Indication: CUTANEOUS T-CELL LYMPHOMA
     Dosage: UNK, 10 OR 20 MG QD
     Route: 065
  3. INTERFERON ALFA 2A [Suspect]
     Active Substance: INTERFERON ALFA-2A
     Indication: CUTANEOUS T-CELL LYMPHOMA
     Dosage: UNK, (6 TO 9 MILLION IU S.C. IN 3 TIMES PER WEEK)
     Route: 065
  4. BEXAROTENE. [Suspect]
     Active Substance: BEXAROTENE
     Indication: CUTANEOUS T-CELL LYMPHOMA
     Dosage: 225 MILLIGRAM, QD
     Route: 065

REACTIONS (2)
  - Sepsis [Fatal]
  - Therapy non-responder [Unknown]
